FAERS Safety Report 19198281 (Version 2)
Quarter: 2021Q2

REPORT INFORMATION
  Report Type: Spontaneous
  Country: US (occurrence: US)
  Receive Date: 20210430
  Receipt Date: 20210618
  Transmission Date: 20210717
  Serious: No
  Sender: FDA-Public Use
  Company Number: US-GLAXOSMITHKLINE-US2021AMR092257

PATIENT
  Sex: Male

DRUGS (1)
  1. ALBUTEROL SULFATE. [Suspect]
     Active Substance: ALBUTEROL SULFATE
     Indication: PRODUCT USED FOR UNKNOWN INDICATION
     Dosage: 90 UG, Z 18G/200 (90MCG 1X200D)

REACTIONS (5)
  - Device use error [Unknown]
  - Incorrect dose administered by product [Unknown]
  - Product complaint [Unknown]
  - Drug ineffective [Unknown]
  - Product storage error [Unknown]
